FAERS Safety Report 13745280 (Version 1)
Quarter: 2017Q3

REPORT INFORMATION
  Report Type: Spontaneous
  Country: US (occurrence: US)
  Receive Date: 20170711
  Receipt Date: 20170711
  Transmission Date: 20171127
  Serious: No
  Sender: FDA-Public Use
  Company Number: None

PATIENT
  Age: 22 Year
  Sex: Female

DRUGS (1)
  1. ENBREL [Suspect]
     Active Substance: ETANERCEPT
     Indication: ANKYLOSING SPONDYLITIS
     Dosage: DOSE - 50MG/ML?
     Route: 058
     Dates: start: 20170111

REACTIONS (2)
  - Discomfort [None]
  - Poor quality sleep [None]

NARRATIVE: CASE EVENT DATE: 20170711
